FAERS Safety Report 5552878-6 (Version None)
Quarter: 2007Q4

REPORT INFORMATION
  Report Type: 
  Country: None (occurrence: None)
  Receive Date: 20071211
  Receipt Date: 20071203
  Transmission Date: 20080405
  Serious: Yes (Other)
  Sender: FDA-Public Use
  Company Number: 2007336792

PATIENT
  Age: 84 Year
  Sex: Female

DRUGS (2)
  1. LUBRIDERM INTENSE REPAIR BODY LOTION (NO ACTIVE INGREDIENT) [Suspect]
     Indication: DRY SKIN
     Dosage: ONCE, ENOUGH TO COVER BODY, TOPICAL
     Route: 061
     Dates: start: 20071201, end: 20071201
  2. LISINOPRIL [Concomitant]

REACTIONS (3)
  - FEELING HOT [None]
  - OEDEMA PERIPHERAL [None]
  - URTICARIA [None]
